FAERS Safety Report 14172293 (Version 2)
Quarter: 2017Q4

REPORT INFORMATION
  Report Type: Spontaneous
  Country: FR (occurrence: FR)
  Receive Date: 20171109
  Receipt Date: 20171123
  Transmission Date: 20180321
  Serious: Yes (Other)
  Sender: FDA-Public Use
  Company Number: FR-SUN PHARMACEUTICAL INDUSTRIES LTD-2017RR-154223

PATIENT
  Age: 89 Year
  Sex: Female

DRUGS (7)
  1. DIGOXIN. [Suspect]
     Active Substance: DIGOXIN
     Indication: TACHYARRHYTHMIA
     Dosage: UNK
     Route: 042
  2. DIGOXIN. [Suspect]
     Active Substance: DIGOXIN
     Indication: CARDIAC FAILURE
  3. APIXABAN [Interacting]
     Active Substance: APIXABAN
     Indication: PRODUCT USED FOR UNKNOWN INDICATION
     Dosage: 2.5 MG, BID
     Route: 065
  4. AMIODARONE [Interacting]
     Active Substance: AMIODARONE
     Indication: ATRIAL FIBRILLATION
     Dosage: 100 MG-0-0
     Route: 065
     Dates: start: 2000
  5. DIGOXIN. [Suspect]
     Active Substance: DIGOXIN
     Indication: CARDIAC FAILURE
  6. DIGOXIN. [Suspect]
     Active Substance: DIGOXIN
     Indication: TACHYARRHYTHMIA
     Dosage: 0.125 MG, DAILY
     Route: 048
  7. FUROSEMIDE. [Concomitant]
     Active Substance: FUROSEMIDE
     Indication: PRODUCT USED FOR UNKNOWN INDICATION
     Route: 065

REACTIONS (3)
  - Drug interaction [Unknown]
  - Drug withdrawal syndrome [Unknown]
  - Overdose [Unknown]
